FAERS Safety Report 24964967 (Version 1)
Quarter: 2025Q1

REPORT INFORMATION
  Report Type: Spontaneous
  Country: GB (occurrence: GB)
  Receive Date: 20250213
  Receipt Date: 20250213
  Transmission Date: 20250409
  Serious: Yes (Other)
  Sender: PFIZER
  Company Number: None

PATIENT
  Age: 80 Year
  Sex: Male

DRUGS (8)
  1. TAFAMIDIS [Suspect]
     Active Substance: TAFAMIDIS
     Indication: Cardiac amyloidosis
     Dosage: 61 MG, 1X/DAY
  2. CANDESARTAN [Concomitant]
     Active Substance: CANDESARTAN
  3. BISOPROLOL [Concomitant]
     Active Substance: BISOPROLOL
  4. APIXABAN [Concomitant]
     Active Substance: APIXABAN
  5. OMEPRAZOLE [Concomitant]
     Active Substance: OMEPRAZOLE
  6. PREDNISOLONE [Concomitant]
     Active Substance: PREDNISOLONE
  7. FINASTERIDE [Concomitant]
     Active Substance: FINASTERIDE
  8. EPLERENONE [Concomitant]
     Active Substance: EPLERENONE

REACTIONS (4)
  - Periorbital swelling [Not Recovered/Not Resolved]
  - Hypothermia [Not Recovered/Not Resolved]
  - Eye pain [Not Recovered/Not Resolved]
  - Fatigue [Not Recovered/Not Resolved]
